FAERS Safety Report 6822570-6 (Version None)
Quarter: 2010Q3

REPORT INFORMATION
  Report Type: 
  Country: None (occurrence: None)
  Receive Date: 20100708
  Receipt Date: 20100706
  Transmission Date: 20110219
  Serious: Yes (Hospitalization)
  Sender: FDA-Public Use
  Company Number: DE-SANOFI-AVENTIS-2010SA038760

PATIENT
  Age: 64 Year
  Sex: Female
  Weight: 110 kg

DRUGS (3)
  1. MULTAQ [Suspect]
     Dosage: 1-2 TABLETS/DAILY
     Route: 048
     Dates: start: 20100205, end: 20100309
  2. METOPROLOL SUCCINATE [Suspect]
     Indication: PRODUCT USED FOR UNKNOWN INDICATION
     Route: 048
     Dates: end: 20100101
  3. PHENPROCOUMON [Concomitant]
     Indication: PRODUCT USED FOR UNKNOWN INDICATION
     Dosage: AFTER QUICK' VALUE
     Route: 048

REACTIONS (6)
  - ANXIETY [None]
  - EXTRASYSTOLES [None]
  - NERVOUSNESS [None]
  - PALPITATIONS [None]
  - SINUS BRADYCARDIA [None]
  - VENTRICULAR EXTRASYSTOLES [None]
